FAERS Safety Report 4791542-8 (Version None)
Quarter: 2005Q4

REPORT INFORMATION
  Report Type: 
  Country: None (occurrence: None)
  Receive Date: 20051007
  Receipt Date: 20050207
  Transmission Date: 20060501
  Serious: No
  Sender: FDA-Public Use
  Company Number: US-BRISTOL-MYERS SQUIBB COMPANY-12852018

PATIENT
  Age: 79 Year
  Sex: Male
  Weight: 54 kg

DRUGS (1)
  1. AVAPRO [Suspect]
     Indication: HYPERTENSION
     Dates: start: 20050101

REACTIONS (1)
  - LIBIDO DECREASED [None]
